FAERS Safety Report 7883303-8 (Version None)
Quarter: 2011Q4

REPORT INFORMATION
  Report Type: 
  Country: None (occurrence: None)
  Receive Date: 20111102
  Receipt Date: 20111026
  Transmission Date: 20120403
  Serious: Yes (Hospitalization)
  Sender: FDA-Public Use
  Company Number: PHEH2011US07777

PATIENT
  Sex: Female

DRUGS (3)
  1. HYDREA [Concomitant]
  2. EXJADE [Suspect]
     Dosage: 2000 MG, QD
     Route: 048
     Dates: start: 20060101
  3. FOLIC ACID [Concomitant]

REACTIONS (3)
  - SICKLE CELL ANAEMIA WITH CRISIS [None]
  - LEUKOCYTOSIS [None]
  - PAIN IN EXTREMITY [None]
